FAERS Safety Report 10160517 (Version 2)
Quarter: 2014Q2

REPORT INFORMATION
  Report Type: Spontaneous
  Country: US (occurrence: US)
  Receive Date: 20140508
  Receipt Date: 20140521
  Transmission Date: 20141212
  Serious: Yes (Hospitalization)
  Sender: FDA-Public Use
  Company Number: US-JNJFOC-20140501958

PATIENT
  Age: 61 Year
  Sex: Male
  Weight: 83.01 kg

DRUGS (5)
  1. OLYSIO [Suspect]
     Indication: HEPATITIS C
     Route: 048
     Dates: start: 20140129, end: 20140211
  2. WARFARIN [Suspect]
     Indication: THROMBOSIS
     Route: 065
     Dates: start: 2008
  3. SOVALDI [Suspect]
     Indication: PRODUCT USED FOR UNKNOWN INDICATION
     Route: 065
  4. BYSTOLIC [Concomitant]
     Indication: HYPERTENSION
     Route: 048
     Dates: start: 2011
  5. FOSINOPRIL [Concomitant]
     Indication: HYPERTENSION
     Route: 048

REACTIONS (4)
  - Colitis [Unknown]
  - Haemorrhage [Recovered/Resolved]
  - Off label use [Recovered/Resolved]
  - Weight decreased [Not Recovered/Not Resolved]
